FAERS Safety Report 12587517 (Version 1)
Quarter: 2016Q3

REPORT INFORMATION
  Report Type: Report from Study
  Country: DE (occurrence: DE)
  Receive Date: 20160725
  Receipt Date: 20160725
  Transmission Date: 20161109
  Serious: Yes (Death, Hospitalization)
  Sender: FDA-Public Use
  Company Number: DE-ROCHE-1324283

PATIENT
  Age: 59 Year
  Sex: Female
  Weight: 57.7 kg

DRUGS (9)
  1. PACLITAXEL. [Suspect]
     Active Substance: PACLITAXEL
     Indication: HER-2 POSITIVE BREAST CANCER
     Dosage: LAST DOSE TAKEN PRIOR TO SAE: 29/NOV/2012
     Route: 042
     Dates: start: 20120913, end: 20121129
  2. LETROZOL [Concomitant]
     Active Substance: LETROZOLE
     Route: 065
     Dates: start: 2012
  3. TRASTUZUMAB [Suspect]
     Active Substance: TRASTUZUMAB
     Indication: HER-2 POSITIVE BREAST CANCER
     Dosage: LOADING DOSE AS PER PROTOCOL
     Route: 042
     Dates: start: 20120913, end: 20120913
  4. TRASTUZUMAB [Suspect]
     Active Substance: TRASTUZUMAB
     Dosage: MAINTENANCE DOSE?LAST DOSE TAKEN PRIOR TO SAE: 05/SEP/2013
     Route: 042
     Dates: end: 20130905
  5. EPIRUBICIN [Suspect]
     Active Substance: EPIRUBICIN
     Indication: HER-2 POSITIVE BREAST CANCER
     Dosage: LAST DOSE TAKEN PRIOR TO SAE: 23/AUG/2012
     Route: 042
     Dates: start: 20120621, end: 20120823
  6. L-THYROXIN [Concomitant]
     Active Substance: LEVOTHYROXINE SODIUM
     Route: 065
     Dates: start: 2011
  7. PLACEBO [Suspect]
     Active Substance: UNSPECIFIED INGREDIENT
     Indication: HER-2 POSITIVE BREAST CANCER
     Dosage: DATE OF LAST DOSE TAKEN PRIOR TO SAE: 05/SEP/2013
     Route: 042
     Dates: start: 20120913, end: 20130905
  8. CYCLOPHOSPHAMIDE. [Suspect]
     Active Substance: CYCLOPHOSPHAMIDE
     Indication: HER-2 POSITIVE BREAST CANCER
     Dosage: LAST DOSE TAKEN PRIOR TO SAE: 23/AUG/2012
     Route: 042
     Dates: start: 20120621, end: 20120823
  9. VENLAFAXINE [Concomitant]
     Active Substance: VENLAFAXINE HYDROCHLORIDE

REACTIONS (1)
  - Cardiac failure [Fatal]

NARRATIVE: CASE EVENT DATE: 201311
